FAERS Safety Report 12067330 (Version 1)
Quarter: 2016Q1

REPORT INFORMATION
  Report Type: Spontaneous
  Country: US (occurrence: None)
  Receive Date: 20160210
  Receipt Date: 20160210
  Transmission Date: 20160526
  Serious: Yes (Other)
  Sender: FDA-Public Use
  Company Number: None

PATIENT
  Age: 53 Year
  Sex: Female
  Weight: 136.53 kg

DRUGS (13)
  1. ADVAIR HFA [Concomitant]
     Active Substance: FLUTICASONE PROPIONATE\SALMETEROL XINAFOATE
  2. ZYRTEK [Concomitant]
     Active Substance: CETIRIZINE HYDROCHLORIDE
  3. TYLENOL [Concomitant]
     Active Substance: ACETAMINOPHEN
  4. CALCIUM [Concomitant]
     Active Substance: CALCIUM
  5. CYMBALTA [Concomitant]
     Active Substance: DULOXETINE HYDROCHLORIDE
  6. CONTRAVE [Suspect]
     Active Substance: BUPROPION HYDROCHLORIDE\NALTREXONE HYDROCHLORIDE
     Indication: WEIGHT DECREASED
     Dosage: 2 PILLS TWICE DAILY TAKEN BY MOUTH
     Route: 048
     Dates: start: 20160106, end: 20160208
  7. ONORA [Concomitant]
  8. NASACORT [Concomitant]
     Active Substance: TRIAMCINOLONE ACETONIDE
  9. LISINAPRAL [Concomitant]
  10. MULTI VITAMIN [Concomitant]
     Active Substance: VITAMINS
  11. LEVOTHYROXIN [Concomitant]
     Active Substance: LEVOTHYROXINE
  12. VENTOLIN [Concomitant]
     Active Substance: ALBUTEROL SULFATE
  13. SINGULAIR [Concomitant]
     Active Substance: MONTELUKAST SODIUM

REACTIONS (10)
  - Agitation [None]
  - Chest pain [None]
  - Tension headache [None]
  - Blood glucose decreased [None]
  - Dyspnoea [None]
  - Anger [None]
  - Chest discomfort [None]
  - Headache [None]
  - Oxygen saturation decreased [None]
  - Feeling abnormal [None]

NARRATIVE: CASE EVENT DATE: 20160208
